FAERS Safety Report 5963711-2 (Version None)
Quarter: 2008Q4

REPORT INFORMATION
  Report Type: 
  Country: None (occurrence: None)
  Receive Date: 20081121
  Receipt Date: 20081121
  Transmission Date: 20090506
  Serious: Yes (Hospitalization)
  Sender: FDA-Public Use
  Company Number: None

PATIENT
  Sex: Male
  Weight: 122 kg

DRUGS (6)
  1. IRINOTECAN HYDROCHLORIDE [Suspect]
     Indication: GLIOBLASTOMA MULTIFORME
     Dosage: 325MG/M2  DAY 1, 8, 22, 29 IV
     Route: 042
     Dates: start: 20060928, end: 20061004
  2. TEMODAR [Suspect]
     Indication: GLIOBLASTOMA MULTIFORME
     Dosage: 200MG/M2  DAYS 1-5 PO
     Route: 048
     Dates: start: 20060928, end: 20061002
  3. DILANTIN [Concomitant]
  4. PEPCID [Concomitant]
  5. CLORAZEPATE DIPOTASSIUM [Concomitant]
  6. DECADRON [Concomitant]

REACTIONS (2)
  - CONFUSIONAL STATE [None]
  - DISEASE PROGRESSION [None]
